FAERS Safety Report 21862158 (Version 6)
Quarter: 2023Q4

REPORT INFORMATION
  Report Type: Spontaneous
  Country: CA (occurrence: CA)
  Receive Date: 20230113
  Receipt Date: 20231204
  Transmission Date: 20240110
  Serious: Yes (Hospitalization, Other)
  Sender: FDA-Public Use
  Company Number: CA-CELLTRION INC.-2018CA020887

PATIENT

DRUGS (42)
  1. INFLECTRA [Suspect]
     Active Substance: INFLIXIMAB-DYYB
     Indication: Crohn^s disease
     Dosage: 5 MG/KG,  0,2,6 WEEKS, THEN EVERY 8 WEEKS
     Route: 042
     Dates: start: 20180522, end: 20180906
  2. INFLECTRA [Suspect]
     Active Substance: INFLIXIMAB-DYYB
     Dosage: 5 MG/KG,  0,2,6 WEEKS, THEN EVERY 8 WEEKS
     Route: 042
     Dates: start: 20180606
  3. INFLECTRA [Suspect]
     Active Substance: INFLIXIMAB-DYYB
     Dosage: 5 MG/KG,  0,2,6 WEEKS, THEN EVERY 8 WEEKS
     Route: 042
     Dates: start: 20180830
  4. INFLECTRA [Suspect]
     Active Substance: INFLIXIMAB-DYYB
     Dosage: 5 MG/KG, EVERY 6 WEEKS
     Route: 042
     Dates: start: 20181011
  5. INFLECTRA [Suspect]
     Active Substance: INFLIXIMAB-DYYB
     Dosage: 5 MG/KG, EVERY 6 WEEKS
     Route: 042
     Dates: start: 20181122
  6. INFLECTRA [Suspect]
     Active Substance: INFLIXIMAB-DYYB
     Dosage: 5 MG/KG, EVERY 6 WEEKS
     Route: 042
     Dates: start: 20190114
  7. INFLECTRA [Suspect]
     Active Substance: INFLIXIMAB-DYYB
     Dosage: 5 MG/KG, EVERY 6 WEEKS
     Route: 042
     Dates: start: 20190225
  8. INFLECTRA [Suspect]
     Active Substance: INFLIXIMAB-DYYB
     Dosage: 5 MG/KG, EVERY 6 WEEKS
     Route: 042
     Dates: start: 20190605
  9. INFLECTRA [Suspect]
     Active Substance: INFLIXIMAB-DYYB
     Dosage: 5 MG/KG, EVERY 6 WEEKS
     Route: 042
     Dates: start: 20190724
  10. INFLECTRA [Suspect]
     Active Substance: INFLIXIMAB-DYYB
     Dosage: 5 MG/KG, EVERY 6 WEEKS
     Route: 042
     Dates: start: 20190906
  11. INFLECTRA [Suspect]
     Active Substance: INFLIXIMAB-DYYB
     Dosage: 5 MG/KG, EVERY 6 WEEKS
     Route: 042
     Dates: start: 20191018
  12. INFLECTRA [Suspect]
     Active Substance: INFLIXIMAB-DYYB
     Dosage: 5 MG/KG, EVERY 6 WEEKS
     Route: 042
     Dates: start: 20191129
  13. INFLECTRA [Suspect]
     Active Substance: INFLIXIMAB-DYYB
     Dosage: 5 MG/KG, EVERY 6 WEEKS
     Route: 042
     Dates: start: 20200109
  14. INFLECTRA [Suspect]
     Active Substance: INFLIXIMAB-DYYB
     Dosage: 5 MG/KG, EVERY 6 WEEKS
     Route: 042
     Dates: start: 20200220
  15. INFLECTRA [Suspect]
     Active Substance: INFLIXIMAB-DYYB
     Dosage: 5 MG/KG, EVERY 6 WEEKS
     Route: 042
     Dates: start: 20200403
  16. INFLECTRA [Suspect]
     Active Substance: INFLIXIMAB-DYYB
     Dosage: 5 MG/KG, EVERY 6 WEEKS
     Route: 042
     Dates: start: 20200515
  17. INFLECTRA [Suspect]
     Active Substance: INFLIXIMAB-DYYB
     Dosage: 5 MG/KG, EVERY 6 WEEKS
     Route: 042
     Dates: start: 20200625
  18. INFLECTRA [Suspect]
     Active Substance: INFLIXIMAB-DYYB
     Dosage: 5 MG/KG, EVERY 6 WEEKS
     Route: 042
     Dates: start: 20200812
  19. INFLECTRA [Suspect]
     Active Substance: INFLIXIMAB-DYYB
     Dosage: 5 MG/KG, EVERY 6 WEEKS
     Route: 042
     Dates: start: 20200930
  20. INFLECTRA [Suspect]
     Active Substance: INFLIXIMAB-DYYB
     Dosage: 5 MG/KG, EVERY 6 WEEKS
     Route: 042
     Dates: start: 20201106
  21. INFLECTRA [Suspect]
     Active Substance: INFLIXIMAB-DYYB
     Dosage: 5 MG/KG, EVERY 6 WEEKS
     Route: 042
     Dates: start: 20201218
  22. INFLECTRA [Suspect]
     Active Substance: INFLIXIMAB-DYYB
     Dosage: 5 MG/KG, EVERY 6 WEEKS
     Route: 042
     Dates: start: 20210222
  23. INFLECTRA [Suspect]
     Active Substance: INFLIXIMAB-DYYB
     Dosage: 5 MG/KG, EVERY 6 WEEKS
     Route: 042
     Dates: start: 20210407
  24. INFLECTRA [Suspect]
     Active Substance: INFLIXIMAB-DYYB
     Dosage: 5 MG/KG, EVERY 6 WEEKS
     Route: 042
     Dates: start: 20210519
  25. INFLECTRA [Suspect]
     Active Substance: INFLIXIMAB-DYYB
     Dosage: 5 MG/KG, EVERY 6 WEEKS
     Route: 042
     Dates: start: 20210629
  26. INFLECTRA [Suspect]
     Active Substance: INFLIXIMAB-DYYB
     Dosage: 5 MG/KG, EVERY 6 WEEKS
     Route: 042
     Dates: start: 20210809
  27. INFLECTRA [Suspect]
     Active Substance: INFLIXIMAB-DYYB
     Dosage: 5 MG/KG, EVERY 6 WEEKS
     Route: 042
     Dates: start: 20210920
  28. INFLECTRA [Suspect]
     Active Substance: INFLIXIMAB-DYYB
     Dosage: 5 MG/KG, EVERY 6 WEEKS
     Route: 042
     Dates: start: 20211109
  29. INFLECTRA [Suspect]
     Active Substance: INFLIXIMAB-DYYB
     Dosage: 5 MG/KG,EVERY 6 WEEKS
     Route: 042
     Dates: start: 20220307
  30. INFLECTRA [Suspect]
     Active Substance: INFLIXIMAB-DYYB
     Dosage: 5 MG/KG,EVERY 6 WEEKS
     Route: 042
     Dates: start: 20220418
  31. INFLECTRA [Suspect]
     Active Substance: INFLIXIMAB-DYYB
     Dosage: 5 MG/KG, EVERY 6 WEEKS
     Route: 042
     Dates: start: 20220530
  32. INFLECTRA [Suspect]
     Active Substance: INFLIXIMAB-DYYB
     Dosage: 5 MG/KG, EVERY 6 WEEKS
     Route: 042
     Dates: start: 20220713
  33. INFLECTRA [Suspect]
     Active Substance: INFLIXIMAB-DYYB
     Dosage: 5 MG/KG, EVERY 6 WEEKS
     Route: 042
     Dates: start: 20220713
  34. INFLECTRA [Suspect]
     Active Substance: INFLIXIMAB-DYYB
     Dosage: 5 MG/KG, EVERY 6 WEEKS
     Route: 042
     Dates: start: 20220830
  35. INFLECTRA [Suspect]
     Active Substance: INFLIXIMAB-DYYB
     Dosage: 251 MG, PATIENT RECEIVED 251 MG ON INFLECTRA WITH A WEIGHT OF 51 KG
     Route: 042
     Dates: start: 20221012
  36. INFLECTRA [Suspect]
     Active Substance: INFLIXIMAB-DYYB
     Dosage: 5 MG/KG, EVERY 6 WEEKS
     Route: 042
     Dates: start: 20221122
  37. INFLECTRA [Suspect]
     Active Substance: INFLIXIMAB-DYYB
     Dosage: 5 MG/KG, EVERY 6 WEEKS
     Route: 042
     Dates: start: 20230105
  38. INFLECTRA [Suspect]
     Active Substance: INFLIXIMAB-DYYB
     Dosage: 270 MG, EVERY 6 WEEKS
     Route: 042
     Dates: start: 20230622, end: 20230622
  39. INFLECTRA [Suspect]
     Active Substance: INFLIXIMAB-DYYB
     Dosage: 270 MG, EVERY 6 WEEKS
     Route: 042
     Dates: start: 20230911
  40. INFLECTRA [Suspect]
     Active Substance: INFLIXIMAB-DYYB
     Dosage: 5 MG/KG EVERY 6 WEEKS, 245 MG
     Route: 042
     Dates: start: 20231026
  41. ACETAMINOPHEN [Concomitant]
     Active Substance: ACETAMINOPHEN
     Indication: Premedication
     Dosage: 650 MG
     Dates: start: 20200930, end: 20200930
  42. MORPHINE [Concomitant]
     Active Substance: MORPHINE
     Dosage: 1 DF (UNK DOSE)
     Route: 065

REACTIONS (25)
  - Acute myocardial infarction [Recovered/Resolved]
  - Myocardial infarction [Recovered/Resolved]
  - Condition aggravated [Recovered/Resolved]
  - Condition aggravated [Recovered/Resolved]
  - Oxygen saturation decreased [Unknown]
  - Arthralgia [Not Recovered/Not Resolved]
  - Abdominal hernia [Unknown]
  - Abdominal distension [Unknown]
  - Decreased appetite [Recovering/Resolving]
  - Stress [Unknown]
  - Blood pressure increased [Unknown]
  - Body temperature decreased [Unknown]
  - Malaise [Not Recovered/Not Resolved]
  - Cough [Not Recovered/Not Resolved]
  - Poor quality sleep [Unknown]
  - Blood pressure diastolic increased [Unknown]
  - Therapeutic response shortened [Not Recovered/Not Resolved]
  - Chest pain [Recovered/Resolved]
  - Blood pressure decreased [Recovered/Resolved]
  - Arthralgia [Recovered/Resolved]
  - Palpitations [Recovered/Resolved]
  - Off label use [Unknown]
  - Off label use [Unknown]
  - Intentional product use issue [Unknown]
  - Inappropriate schedule of product administration [Unknown]

NARRATIVE: CASE EVENT DATE: 20180606
